FAERS Safety Report 18623598 (Version 7)
Quarter: 2024Q2

REPORT INFORMATION
  Report Type: Spontaneous
  Country: US (occurrence: US)
  Receive Date: 20201216
  Receipt Date: 20240613
  Transmission Date: 20240715
  Serious: Yes (Disabling, Other)
  Sender: FDA-Public Use
  Company Number: US-PFIZER INC-2020494750

PATIENT
  Age: 57 Year
  Sex: Female
  Weight: 99.79 kg

DRUGS (1)
  1. XELJANZ XR [Suspect]
     Active Substance: TOFACITINIB CITRATE
     Indication: Rheumatoid arthritis
     Dosage: 11 MG, 1X/DAY
     Route: 048

REACTIONS (12)
  - Rheumatoid arthritis [Unknown]
  - Migraine [Not Recovered/Not Resolved]
  - Fibromyalgia [Unknown]
  - Upper limb fracture [Unknown]
  - Product dispensing error [Unknown]
  - Exposure to toxic agent [Unknown]
  - Gait disturbance [Unknown]
  - Hot flush [Unknown]
  - Malaise [Unknown]
  - Body height decreased [Unknown]
  - Pain [Unknown]
  - Frustration tolerance decreased [Unknown]

NARRATIVE: CASE EVENT DATE: 20201228
